FAERS Safety Report 9514099 (Version 2)
Quarter: 2013Q3

REPORT INFORMATION
  Report Type: Report from Study
  Country: PR (occurrence: PR)
  Receive Date: 20130910
  Receipt Date: 20130910
  Transmission Date: 20140515
  Serious: Yes (Other)
  Sender: FDA-Public Use
  Company Number: PR-ABBOTT-13P-131-1048924-00

PATIENT
  Age: 35 Year
  Sex: Female
  Weight: 64.92 kg

DRUGS (3)
  1. HUMIRA [Suspect]
     Indication: COLITIS ULCERATIVE
     Route: 050
     Dates: start: 201209, end: 201212
  2. HUMIRA [Suspect]
     Indication: ARTHRITIS
     Route: 050
     Dates: start: 201301, end: 201302
  3. HUMIRA [Suspect]
     Route: 050
     Dates: start: 201303

REACTIONS (3)
  - Female genital tract fistula [Recovered/Resolved]
  - Female genital tract fistula [Recovered/Resolved]
  - Anal abscess [Unknown]
